FAERS Safety Report 9021891 (Version 3)
Quarter: 2013Q1

REPORT INFORMATION
  Report Type: Spontaneous
  Country: US (occurrence: US)
  Receive Date: 20130118
  Receipt Date: 20130225
  Transmission Date: 20140127
  Serious: No
  Sender: FDA-Public Use
  Company Number: US-009507513-1301USA008113

PATIENT
  Sex: Female
  Weight: 64.85 kg

DRUGS (1)
  1. NEXPLANON [Suspect]
     Indication: CONTRACEPTION
     Dosage: SINGLE ROD
     Route: 059
     Dates: start: 20120823

REACTIONS (1)
  - Exposure during pregnancy [Unknown]
